FAERS Safety Report 4831212-0 (Version None)
Quarter: 2005Q4

REPORT INFORMATION
  Report Type: 
  Country: None (occurrence: None)
  Receive Date: 20051118
  Receipt Date: 20051111
  Transmission Date: 20060501
  Serious: Yes (Hospitalization)
  Sender: FDA-Public Use
  Company Number: US-BRISTOL-MYERS SQUIBB COMPANY-13179650

PATIENT
  Age: 45 Year
  Sex: Male

DRUGS (5)
  1. ERBITUX [Suspect]
     Indication: NON-SMALL CELL LUNG CANCER
     Route: 042
     Dates: start: 20051108, end: 20051108
  2. LASIX [Concomitant]
     Dates: start: 20051022
  3. METOPROLOL [Concomitant]
     Dates: end: 20051110
  4. NEXIUM [Concomitant]
     Dates: start: 20051022
  5. TOPROL-XL [Concomitant]
     Dates: start: 20051022

REACTIONS (1)
  - ATRIAL FIBRILLATION [None]
